FAERS Safety Report 7426125-4 (Version None)
Quarter: 2011Q2

REPORT INFORMATION
  Report Type: 
  Country: None (occurrence: None)
  Receive Date: 20110420
  Receipt Date: 20110408
  Transmission Date: 20111010
  Serious: Yes (Hospitalization)
  Sender: FDA-Public Use
  Company Number: PHHY2011US30209

PATIENT

DRUGS (1)
  1. ILARIS [Suspect]
     Route: 058

REACTIONS (1)
  - INFECTION [None]
